FAERS Safety Report 24825331 (Version 6)
Quarter: 2025Q4

REPORT INFORMATION
  Report Type: Spontaneous
  Country: US (occurrence: US)
  Receive Date: 20250109
  Receipt Date: 20251117
  Transmission Date: 20260117
  Serious: No
  Sender: PFIZER
  Company Number: US-PFIZER INC-202500000175

PATIENT
  Age: 11 Year
  Sex: Male
  Weight: 34.927 kg

DRUGS (2)
  1. GENOTROPIN [Suspect]
     Active Substance: SOMATROPIN
     Indication: Growth hormone deficiency
     Dosage: 1.2 MG, 1X/DAY
  2. FLONASE [Concomitant]
     Active Substance: FLUTICASONE PROPIONATE
     Indication: Seasonal allergy
     Dosage: 2 DF, DAILY (ONE SPRAY IN EACH NOSTRIL DAILY)

REACTIONS (3)
  - Device breakage [Unknown]
  - Device material issue [Unknown]
  - Device use error [Unknown]
